FAERS Safety Report 4975725-X (Version None)
Quarter: 2006Q2

REPORT INFORMATION
  Report Type: 
  Country: None (occurrence: None)
  Receive Date: 20060411
  Receipt Date: 20060403
  Transmission Date: 20061013
  Serious: Yes (Other)
  Sender: FDA-Public Use
  Company Number: 200308628

PATIENT
  Age: 66 Year
  Sex: Male

DRUGS (10)
  1. STREPTASE [Suspect]
     Indication: MYOCARDIAL INFARCTION
     Dosage: 1.5 MIU DAILY IV
     Route: 042
     Dates: start: 20030303, end: 20030303
  2. ASPIRIN [Suspect]
     Indication: MYOCARDIAL INFARCTION
     Dosage: 150 MG DAILY PO
     Route: 048
     Dates: start: 20030302, end: 20030303
  3. ENOXAPARIN SODIUM [Suspect]
     Indication: MYOCARDIAL INFARCTION
     Dates: start: 20030303, end: 20030305
  4. INHIBACE [Concomitant]
  5. OXAZEPAM [Concomitant]
  6. CORTICOSTEROID [Concomitant]
  7. METOPROLOL TARTRATE [Concomitant]
  8. ISOCARDIDE [Concomitant]
  9. TRITACE [Concomitant]
  10. HYDROCORT [Concomitant]

REACTIONS (2)
  - HAEMATOMA [None]
  - HAEMOGLOBIN DECREASED [None]
